FAERS Safety Report 5305331-9 (Version None)
Quarter: 2007Q2

REPORT INFORMATION
  Report Type: 
  Country: None (occurrence: None)
  Receive Date: 20070416
  Receipt Date: 20070403
  Transmission Date: 20071010
  Serious: Yes (Death)
  Sender: FDA-Public Use
  Company Number: FSC_0088_2007

PATIENT
  Age: 72 Year
  Sex: Male

DRUGS (5)
  1. ISOPTIN [Suspect]
     Indication: HYPERTENSION
     Dosage: 240 MG QDAY PO
     Route: 048
     Dates: start: 20000101, end: 20060101
  2. MELOXICAM [Concomitant]
  3. TRIFLUOPERAZINE HYDROCHLORIDE [Concomitant]
  4. PAROXETINE HYDROCHLORIDE [Concomitant]
  5. SALBUTAMOL [Concomitant]

REACTIONS (2)
  - ACCIDENTAL OVERDOSE [None]
  - DRUG TOXICITY [None]
